FAERS Safety Report 18207331 (Version 1)
Quarter: 2020Q3

REPORT INFORMATION
  Report Type: Spontaneous
  Country: US (occurrence: US)
  Receive Date: 20200828
  Receipt Date: 20200828
  Transmission Date: 20201103
  Serious: Yes (Hospitalization)
  Sender: FDA-Public Use
  Company Number: None

PATIENT
  Sex: Female

DRUGS (3)
  1. DUREZOL, MULTIPLE VITAMIN, NEVANAC, CLARITIN, RED YEAST [Concomitant]
  2. HUMIRA [Suspect]
     Active Substance: ADALIMUMAB
     Indication: CROHN^S DISEASE
     Dosage: ?          OTHER FREQUENCY:EVERY 14 DAYS;?
     Route: 048
     Dates: start: 20190917
  3. LISINOPRIL, PRAVASTATIN, AZATHIOPRINE [Concomitant]

REACTIONS (2)
  - Therapy interrupted [None]
  - Dental operation [None]
